FAERS Safety Report 9293943 (Version 1)
Quarter: 2013Q1

REPORT INFORMATION
  Report Type: Spontaneous
  Country: US (occurrence: None)
  Receive Date: 20121221
  Receipt Date: 20121221
  Transmission Date: 20140127
  Serious: Yes (Hospitalization)
  Sender: FDA-Public Use
  Company Number: PHEH2012US001841

PATIENT
  Sex: Male

DRUGS (1)
  1. FOCALIN XR [Suspect]

REACTIONS (2)
  - Depression [None]
  - Weight increased [None]
